FAERS Safety Report 9614518 (Version 2)
Quarter: 2014Q1

REPORT INFORMATION
  Report Type: Report from Study
  Country: FR (occurrence: FR)
  Receive Date: 20131011
  Receipt Date: 20140117
  Transmission Date: 20141002
  Serious: Yes (Hospitalization)
  Sender: FDA-Public Use
  Company Number: FR-ROCHE-1287108

PATIENT
  Sex: Female

DRUGS (7)
  1. LERCAPRESS (FRANCE) [Concomitant]
  2. ESIDREX [Concomitant]
  3. NEBIVOLOL [Concomitant]
  4. PANTOPRAZOLE [Concomitant]
  5. NAPROSYNE [Concomitant]
  6. BEVACIZUMAB [Suspect]
     Indication: BREAST CANCER
     Dosage: LAST CYCLE ADMINISTERED BEFORE SAE WAS CYCLE 26 ON 11/SEP/2013, LAST DOSE OF BEVACIZUMAB ADMINISTERE
     Route: 042
     Dates: start: 20120516
  7. EXEMESTANE [Suspect]
     Indication: BREAST CANCER
     Dosage: LAST DOSE OF EXEMESTANE WAS 25 MG/DAY
     Route: 065
     Dates: start: 20120405

REACTIONS (3)
  - Breast pain [Recovered/Resolved]
  - Breast inflammation [Recovered/Resolved]
  - Pyrexia [Recovering/Resolving]
